FAERS Safety Report 6711412-5 (Version None)
Quarter: 2010Q2

REPORT INFORMATION
  Report Type: 
  Country: None (occurrence: None)
  Receive Date: 20100505
  Receipt Date: 20100426
  Transmission Date: 20101027
  Serious: Yes (Other)
  Sender: FDA-Public Use
  Company Number: NL-PFIZER INC-2010029490

PATIENT
  Sex: Male

DRUGS (3)
  1. LIPITOR [Suspect]
     Dosage: 20 MG, UNK
     Dates: start: 19950101
  2. LYRICA [Suspect]
     Indication: HERPES ZOSTER
     Dosage: UNK
  3. TOPAMAX [Suspect]
     Indication: HEADACHE
     Dosage: UNK

REACTIONS (2)
  - ABDOMINAL DISCOMFORT [None]
  - GASTRIC DISORDER [None]
